FAERS Safety Report 7948508-6 (Version None)
Quarter: 2011Q4

REPORT INFORMATION
  Report Type: 
  Country: None (occurrence: None)
  Receive Date: 20111123
  Receipt Date: 20111114
  Transmission Date: 20120403
  Serious: Yes (Hospitalization)
  Sender: FDA-Public Use
  Company Number: 2011MA016371

PATIENT
  Age: 32 Year
  Sex: Female
  Weight: 44 kg

DRUGS (4)
  1. FEVERALL [Suspect]
     Indication: ALCOHOL WITHDRAWAL SYNDROME
     Dosage: 4 GR;QD;PO
     Route: 048
  2. FEVERALL [Suspect]
     Indication: ABDOMINAL PAIN
     Dosage: 4 GR;QD;PO
     Route: 048
  3. VITAMIN SUPPLEMENTS (NO PREF. NAME) [Suspect]
     Indication: ALCOHOL WITHDRAWAL SYNDROME
  4. VITAMIN SUPPLEMENTS (NO PREF. NAME) [Suspect]
     Indication: ABDOMINAL PAIN

REACTIONS (1)
  - ACUTE HEPATIC FAILURE [None]
